FAERS Safety Report 4338856-3 (Version None)
Quarter: 2004Q2

REPORT INFORMATION
  Report Type: 
  Country: None (occurrence: None)
  Receive Date: 20040409
  Receipt Date: 20040402
  Transmission Date: 20050107
  Serious: Yes (Hospitalization)
  Sender: FDA-Public Use
  Company Number: HQ8076106NOV2001

PATIENT
  Age: 77 Year
  Sex: Female
  Weight: 89.6 kg

DRUGS (4)
  1. ETANERCEPT (ETANERCEPT, INJECTION) [Suspect]
     Indication: RHEUMATOID ARTHRITIS
     Dosage: 25 MG 2X PER 1 WK, SUBCUTANEOUS
     Route: 058
     Dates: start: 20010315
  2. SULFASALAZINE [Suspect]
     Dosage: 2 TO 3G AS PER PROTOCOL, ORAL
     Route: 048
  3. GAVISCON     (ALGINIC ACID/ALUMINUM HYDROXIDE/SODIUM BICARBONATE) [Concomitant]
  4. AMIAS (CANDESARTAN CILEXETIL) [Concomitant]

REACTIONS (1)
  - DEEP VEIN THROMBOSIS [None]
